FAERS Safety Report 24789230 (Version 1)
Quarter: 2024Q4

REPORT INFORMATION
  Report Type: Spontaneous
  Country: JP (occurrence: JP)
  Receive Date: 20241230
  Receipt Date: 20241230
  Transmission Date: 20250115
  Serious: Yes (Other)
  Sender: PFIZER
  Company Number: JP-PFIZER INC-PV202400166335

PATIENT
  Age: 47 Year
  Sex: Male
  Weight: 75 kg

DRUGS (2)
  1. GEMCITABINE HYDROCHLORIDE [Suspect]
     Active Substance: GEMCITABINE HYDROCHLORIDE
     Indication: Bladder transitional cell carcinoma stage IV
     Dosage: 1000 MG/M2, CYCLIC (DAY 1, 8 AND 15)
  2. CISPLATIN [Suspect]
     Active Substance: CISPLATIN
     Indication: Bladder transitional cell carcinoma stage IV
     Dosage: 70 MG/M2 DAY 2: 28 DAYS

REACTIONS (1)
  - Thrombocytosis [Unknown]
